FAERS Safety Report 16790670 (Version 1)
Quarter: 2019Q3

REPORT INFORMATION
  Report Type: Spontaneous
  Country: US (occurrence: US)
  Receive Date: 20190910
  Receipt Date: 20190910
  Transmission Date: 20191005
  Serious: No
  Sender: FDA-Public Use
  Company Number: US-PFIZER INC-2018375460

PATIENT
  Age: 71 Year
  Sex: Male
  Weight: 133 kg

DRUGS (3)
  1. JANUVIA [Concomitant]
     Active Substance: SITAGLIPTIN PHOSPHATE
     Dosage: UNK
  2. ELIQUIS [Concomitant]
     Active Substance: APIXABAN
     Dosage: UNK
  3. CADUET [Suspect]
     Active Substance: AMLODIPINE BESYLATE\ATORVASTATIN CALCIUM
     Dosage: UNK, 1X/DAY (10 MG-40 MG BY MOUTH EVERY DAY)
     Route: 048

REACTIONS (4)
  - Product dispensing error [Unknown]
  - Feeling abnormal [Unknown]
  - Product dose omission [Unknown]
  - Memory impairment [Unknown]
